FAERS Safety Report 8330309-0 (Version None)
Quarter: 2012Q2

REPORT INFORMATION
  Report Type: 
  Country: None (occurrence: None)
  Receive Date: 20120502
  Receipt Date: 20120420
  Transmission Date: 20120825
  Serious: Yes (Hospitalization)
  Sender: FDA-Public Use
  Company Number: FR-FRI-1000030183

PATIENT
  Sex: Male

DRUGS (6)
  1. ZOLPIDEM TARTRATE [Suspect]
     Dosage: 10 MG
     Route: 048
  2. GALANTAMINE HYDROBROMIDE [Suspect]
     Dosage: 8 MG
     Route: 048
     Dates: start: 20110101
  3. ATARAX [Suspect]
     Dosage: 100 MG
     Route: 048
     Dates: start: 20110901
  4. HALDOL [Suspect]
     Dosage: 24 DF
     Route: 048
     Dates: start: 20110701
  5. ESCITALOPRAM [Suspect]
     Dosage: 10 MG
     Route: 048
  6. ALPRAZOLAM [Suspect]
     Dosage: 1.5 MG
     Route: 048

REACTIONS (2)
  - OESOPHAGEAL STENOSIS [None]
  - DUODENITIS [None]
